FAERS Safety Report 5284462-6 (Version None)
Quarter: 2007Q1

REPORT INFORMATION
  Report Type: 
  Country: None (occurrence: None)
  Receive Date: 20070330
  Receipt Date: 20070330
  Transmission Date: 20070707
  Serious: Yes (Other)
  Sender: FDA-Public Use
  Company Number: None

PATIENT
  Age: 51 Year
  Sex: Female
  Weight: 59.8748 kg

DRUGS (2)
  1. ZYVOX [Suspect]
     Indication: CATHETER RELATED INFECTION
     Dosage: IV DRIP
     Route: 041
     Dates: start: 20061115, end: 20061122
  2. ZYVOX [Suspect]
     Indication: SEPSIS
     Dosage: IV DRIP
     Route: 041
     Dates: start: 20061115, end: 20061122

REACTIONS (14)
  - AGEUSIA [None]
  - ANOREXIA [None]
  - ASTHENIA [None]
  - DEHYDRATION [None]
  - DIARRHOEA [None]
  - DYSPEPSIA [None]
  - EYE DISORDER [None]
  - FUNGUS STOOL IDENTIFIED [None]
  - GASTROINTESTINAL DISORDER [None]
  - MUSCLE FATIGUE [None]
  - ORAL CANDIDIASIS [None]
  - VOMITING [None]
  - VULVOVAGINAL MYCOTIC INFECTION [None]
  - WEIGHT DECREASED [None]
